FAERS Safety Report 6703090-6 (Version None)
Quarter: 2010Q2

REPORT INFORMATION
  Report Type: 
  Country: None (occurrence: None)
  Receive Date: 20100428
  Receipt Date: 20100422
  Transmission Date: 20101027
  Serious: Yes (Life-Threatening, Hospitalization)
  Sender: FDA-Public Use
  Company Number: 2010022515

PATIENT
  Sex: Male

DRUGS (3)
  1. OCTOSTIM NASAL SPRAY (DESMOPRESSIN ACETATE) [Suspect]
     Indication: HAEMORRHAGE
     Dosage: (360-600 UG/DAY, NASAL)
     Route: 045
     Dates: start: 20080401, end: 20100317
  2. ZYPREXA [Suspect]
  3. CYKLOKAPRON [Concomitant]

REACTIONS (11)
  - BLOOD CREATINE PHOSPHOKINASE INCREASED [None]
  - BLOOD OSMOLARITY DECREASED [None]
  - C-REACTIVE PROTEIN INCREASED [None]
  - CHEST X-RAY ABNORMAL [None]
  - CONVULSION [None]
  - DIZZINESS [None]
  - HYPONATRAEMIA [None]
  - INCORRECT DRUG ADMINISTRATION DURATION [None]
  - LOSS OF CONSCIOUSNESS [None]
  - NAUSEA [None]
  - VOMITING [None]
